FAERS Safety Report 6180192-7 (Version None)
Quarter: 2009Q2

REPORT INFORMATION
  Report Type: 
  Country: None (occurrence: None)
  Receive Date: 20090501
  Receipt Date: 20090421
  Transmission Date: 20091009
  Serious: No
  Sender: FDA-Public Use
  Company Number: 2009-195403-NL

PATIENT
  Age: 29 Year
  Sex: Female

DRUGS (1)
  1. ETONOGESTREL (BATCH #: 112011/175643) [Suspect]
     Dosage: DF SUBCUTANEOUS
     Route: 058
     Dates: start: 20081010, end: 20090416

REACTIONS (1)
  - IMPLANT SITE NECROSIS [None]
